FAERS Safety Report 23362243 (Version 1)
Quarter: 2024Q1

REPORT INFORMATION
  Report Type: Spontaneous
  Country: US (occurrence: None)
  Receive Date: 20240102
  Receipt Date: 20240102
  Transmission Date: 20240409
  Serious: Yes (Other)
  Sender: FDA-Public Use
  Company Number: None

PATIENT
  Sex: Female

DRUGS (25)
  1. MYFORTIC [Suspect]
     Active Substance: MYCOPHENOLATE SODIUM
     Indication: Renal transplant
     Dosage: FREQUENCY : TWICE A DAY;?
     Route: 048
     Dates: start: 20170929
  2. ATORVASTATIN [Concomitant]
     Active Substance: ATORVASTATIN
  3. BABY ASPIRIN CHW [Concomitant]
  4. BUPROPION [Concomitant]
     Active Substance: BUPROPION
  5. BUPROPHN HCL XL [Concomitant]
  6. CAL ANTACID CHW [Concomitant]
  7. CALCITRIOL [Concomitant]
     Active Substance: CALCITRIOL
  8. EPOGEN [Concomitant]
     Active Substance: ERYTHROPOIETIN
  9. FAMOTIDINE [Concomitant]
     Active Substance: FAMOTIDINE
  10. FUROSEMIDE [Concomitant]
     Active Substance: FUROSEMIDE
  11. IRON [Concomitant]
     Active Substance: IRON
  12. JANUVIA [Concomitant]
     Active Substance: SITAGLIPTIN PHOSPHATE
  13. KENALOG-40 [Concomitant]
     Active Substance: TRIAMCINOLONE ACETONIDE
  14. LANTISEPTIC OIN PROTECT [Concomitant]
  15. LEVOTHYROXINE [Concomitant]
     Active Substance: LEVOTHYROXINE
  16. LISINOPRIL [Concomitant]
     Active Substance: LISINOPRIL
  17. METOCLOPRAMIDE [Concomitant]
     Active Substance: METOCLOPRAMIDE
  18. MULTI-VITE TAB [Concomitant]
  19. PREDNISONE [Concomitant]
     Active Substance: PREDNISONE
  20. PROGRAF [Concomitant]
  21. PROLIA [Concomitant]
     Active Substance: DENOSUMAB
  22. RANITIDINE [Concomitant]
     Active Substance: RANITIDINE
  23. ST JOSEPH AS CHW [Concomitant]
  24. SYNTHROID [Concomitant]
     Active Substance: LEVOTHYROXINE SODIUM
  25. VIRT-PHOS 250 NEUTRAL [Concomitant]

REACTIONS (1)
  - Diverticulitis [None]
